FAERS Safety Report 26204272 (Version 1)
Quarter: 2025Q4

REPORT INFORMATION
  Report Type: Report from Study
  Country: US (occurrence: US)
  Receive Date: 20251226
  Receipt Date: 20251226
  Transmission Date: 20260118
  Serious: Yes (Hospitalization, Other)
  Sender: SPRINGWORKS THERAPEUTIC
  Company Number: US-SPRINGWORKS THERAPEUTICS-SW-002587

PATIENT
  Age: 28 Year
  Sex: Female
  Weight: 50.794 kg

DRUGS (4)
  1. MIRDAMETINIB [Suspect]
     Active Substance: MIRDAMETINIB
     Indication: Neurofibromatosis
     Dosage: 4 MILLIGRAM, BID
     Route: 061
     Dates: start: 20250418, end: 20250428
  2. MIRDAMETINIB [Suspect]
     Active Substance: MIRDAMETINIB
     Indication: Nervous system neoplasm benign
     Dosage: 4 MILLIGRAM, BID
     Route: 061
     Dates: start: 20250603, end: 20250710
  3. MIRDAMETINIB [Suspect]
     Active Substance: MIRDAMETINIB
     Indication: Nervous system neoplasm benign
     Dosage: 4 MILLIGRAM, BID
     Route: 061
     Dates: start: 20250910
  4. MIRDAMETINIB [Suspect]
     Active Substance: MIRDAMETINIB
     Dosage: 2 MILLIGRAM, BID
     Route: 061
     Dates: start: 202504

REACTIONS (10)
  - Drug ineffective [Unknown]
  - Bradycardia [Unknown]
  - Non-cardiac chest pain [Unknown]
  - Dizziness [Unknown]
  - Dehydration [Unknown]
  - Nausea [Recovering/Resolving]
  - Product use issue [Unknown]
  - Product dose omission issue [Unknown]
  - Product dose omission in error [Unknown]
  - Insurance issue [Unknown]

NARRATIVE: CASE EVENT DATE: 20250401
